FAERS Safety Report 8255883-4 (Version None)
Quarter: 2012Q2

REPORT INFORMATION
  Report Type: 
  Country: None (occurrence: None)
  Receive Date: 20120403
  Receipt Date: 20120328
  Transmission Date: 20120825
  Serious: Yes (Hospitalization, Other)
  Sender: FDA-Public Use
  Company Number: US-AMGEN-USASP2011061828

PATIENT
  Age: 53 Year
  Sex: Female
  Weight: 134.69 kg

DRUGS (16)
  1. METHOTREXATE [Concomitant]
     Dosage: UNK
  2. ALBUTEROL [Concomitant]
     Dosage: UNK
  3. ALBUTEROL [Concomitant]
  4. ENBREL [Suspect]
     Indication: RHEUMATOID ARTHRITIS
     Dosage: 50 MG, QWK
     Route: 058
     Dates: start: 20110916, end: 20111028
  5. ASMANEX TWISTHALER [Concomitant]
     Dosage: UNK
  6. DYAZIDE [Concomitant]
     Dosage: UNK
  7. OPANA [Concomitant]
     Dosage: UNK
  8. VALIUM [Concomitant]
     Dosage: UNK
  9. FOLIC ACID [Concomitant]
     Dosage: UNK
  10. OMNARIS [Concomitant]
     Dosage: UNK
  11. NEURONTIN [Concomitant]
     Dosage: UNK
  12. ZYRTEC [Concomitant]
     Dosage: UNK
  13. SINGULAIR [Concomitant]
     Dosage: UNK
  14. ENBREL [Suspect]
     Dosage: 50 MG, QWK
     Route: 058
     Dates: start: 20110915, end: 20111028
  15. ASTELIN [Concomitant]
     Dosage: UNK
  16. OXYCODONE HCL [Concomitant]
     Dosage: UNK

REACTIONS (11)
  - HEART RATE IRREGULAR [None]
  - BLOOD PRESSURE INCREASED [None]
  - INJECTION SITE REACTION [None]
  - HYPERHIDROSIS [None]
  - INJECTION SITE SWELLING [None]
  - INJECTION SITE URTICARIA [None]
  - DYSPNOEA [None]
  - HYPERSENSITIVITY [None]
  - HEADACHE [None]
  - CHEST PAIN [None]
  - INJECTION SITE ERYTHEMA [None]
